FAERS Safety Report 15804203 (Version 5)
Quarter: 2019Q2

REPORT INFORMATION
  Report Type: Spontaneous
  Country: US (occurrence: US)
  Receive Date: 20190109
  Receipt Date: 20190618
  Transmission Date: 20190711
  Serious: No
  Sender: FDA-Public Use
  Company Number: US-ACTELION-A-NJ2018-184148

PATIENT
  Age: 66 Year
  Sex: Female

DRUGS (1)
  1. OPSUMIT [Suspect]
     Active Substance: MACITENTAN
     Indication: PULMONARY ARTERIAL HYPERTENSION
     Dosage: 10 MG, QD
     Route: 048
     Dates: start: 20181025

REACTIONS (5)
  - Autoimmune disorder [Unknown]
  - Myalgia [Unknown]
  - Tooth fracture [Unknown]
  - Coronary artery disease [Unknown]
  - Dyspepsia [Unknown]

NARRATIVE: CASE EVENT DATE: 20190228
